FAERS Safety Report 6730659-5 (Version None)
Quarter: 2010Q2

REPORT INFORMATION
  Report Type: 
  Country: None (occurrence: None)
  Receive Date: 20100518
  Receipt Date: 20100507
  Transmission Date: 20101027
  Serious: Yes (Other)
  Sender: FDA-Public Use
  Company Number: GB-JNJFOC-20100502850

PATIENT
  Age: 76 Year
  Sex: Female
  Weight: 75.5 kg

DRUGS (8)
  1. REMICADE [Suspect]
     Indication: RHEUMATOID ARTHRITIS
     Route: 042
  2. FOLIC ACID [Concomitant]
     Indication: RHEUMATOID ARTHRITIS
     Route: 048
  3. METHOTREXATE [Concomitant]
     Indication: RHEUMATOID ARTHRITIS
     Route: 048
  4. PAMIDRONIC ACID [Concomitant]
     Indication: OSTEOPOROSIS
     Route: 042
  5. PHYLLOCONTIN [Concomitant]
     Indication: ASTHMA
     Route: 055
  6. SERETIDE [Concomitant]
     Indication: ASTHMA
     Route: 055
  7. VENTOLIN [Concomitant]
     Indication: ASTHMA
     Route: 055
  8. PARACETAMOL [Concomitant]
     Indication: RHEUMATOID ARTHRITIS
     Route: 048

REACTIONS (4)
  - CHEST DISCOMFORT [None]
  - DYSPNOEA [None]
  - NAUSEA [None]
  - VOMITING [None]
